FAERS Safety Report 9698219 (Version 1)
Quarter: 2013Q4

REPORT INFORMATION
  Report Type: Spontaneous
  Country: US (occurrence: None)
  Receive Date: 20131112
  Receipt Date: 20131112
  Transmission Date: 20140711
  Serious: Yes (Other)
  Sender: FDA-Public Use
  Company Number: 2013034529

PATIENT
  Age: 75 Year
  Sex: Female
  Weight: 90.72 kg

DRUGS (16)
  1. VENLAFAXINE (VENLAFAXINE) [Concomitant]
  2. FOLIC ACID (FOLIC ACID) [Concomitant]
  3. NEXIUM (ESOMEPRAZOLE MAGNESIUM) [Concomitant]
  4. CALCIUM (CALCIUM) [Concomitant]
  5. VITAMINS [Concomitant]
  6. FISH OIL (FISH OIL) [Concomitant]
  7. VITAMIN D3 (COLECALCIFEROL) [Concomitant]
  8. HIZENTRA [Suspect]
     Indication: IMMUNODEFICIENCY COMMON VARIABLE
     Dosage: 10G 1X/WEEK, 2 GM 10 ML VIAL; 50 ML IN 1/2 HRS VIA MULTIPLE SITES SUBCUTANEOUS)?
     Route: 058
     Dates: start: 20130116, end: 20130116
  9. ACETAMINOPHEN )PARACETAMOL) [Concomitant]
  10. DIPHENHYDRAMINE (DIPHENHYDRAMINE) [Concomitant]
  11. LIDOCAINE PRILOCAINE (EMLA/00675501/) [Concomitant]
  12. EPIPEN (EPINEPHRINE) [Concomitant]
  13. LMX (LIDOCAINE) [Concomitant]
  14. CELLCEPT (MYCOPHENOLATE MOFETIL) TABLET [Concomitant]
  15. XANAX (ALPRAZOLAM) [Concomitant]
  16. ATENOLOL (ATENOLOL) [Concomitant]

REACTIONS (2)
  - Pain [None]
  - Thrombosis [None]
